FAERS Safety Report 6417447-4 (Version None)
Quarter: 2009Q4

REPORT INFORMATION
  Report Type: 
  Country: None (occurrence: None)
  Receive Date: 20091026
  Receipt Date: 20091014
  Transmission Date: 20100525
  Serious: Yes (Hospitalization, Other)
  Sender: FDA-Public Use
  Company Number: 230022M09ESP

PATIENT
  Age: 32 Year
  Sex: Male

DRUGS (3)
  1. REBIF [Suspect]
     Indication: MULTIPLE SCLEROSIS
     Dosage: 44 MCG, 3 IN 1 WEEKS, SUBCUTANEOUS
     Route: 058
     Dates: start: 20040101
  2. CONCERTA [Suspect]
     Indication: ATTENTION DEFICIT/HYPERACTIVITY DISORDER
     Dosage: 72 MG, 1 IN 1 DAYS, ORAL
     Route: 048
     Dates: start: 20080101, end: 20090724
  3. NOCTAMID (LORMETAZEPAM) [Concomitant]

REACTIONS (2)
  - MANIA [None]
  - SCHIZOAFFECTIVE DISORDER BIPOLAR TYPE [None]
